FAERS Safety Report 20390719 (Version 1)
Quarter: 2022Q1

REPORT INFORMATION
  Report Type: Other
  Country: JP (occurrence: None)
  Receive Date: 20220128
  Receipt Date: 20220128
  Transmission Date: 20220423
  Serious: Yes (Hospitalization, Other)
  Sender: FDA-Public Use
  Company Number: JP-Saptalis Pharmaceuticals,LLC-000166

PATIENT
  Age: 57 Year
  Sex: Male

DRUGS (1)
  1. METFORMIN [Suspect]
     Active Substance: METFORMIN HYDROCHLORIDE
     Indication: Diabetes mellitus

REACTIONS (3)
  - Toxic encephalopathy [Recovering/Resolving]
  - Lactic acidosis [Recovered/Resolved]
  - Contraindicated product prescribed [Unknown]
